FAERS Safety Report 13793668 (Version 3)
Quarter: 2017Q3

REPORT INFORMATION
  Report Type: Spontaneous
  Country: BE (occurrence: BE)
  Receive Date: 20170726
  Receipt Date: 20170803
  Transmission Date: 20171127
  Serious: Yes (Other)
  Sender: FDA-Public Use
  Company Number: BE-JAZZ-2017-BE-009552

PATIENT
  Age: 2 Year
  Sex: Male

DRUGS (1)
  1. XYREM [Suspect]
     Active Substance: SODIUM OXYBATE
     Indication: PRODUCT USED FOR UNKNOWN INDICATION

REACTIONS (6)
  - Toxicity to various agents [Recovered/Resolved]
  - Cold sweat [Recovered/Resolved]
  - Meningitis [Recovered/Resolved]
  - Loss of consciousness [Recovered/Resolved]
  - CSF white blood cell count increased [Recovered/Resolved]
  - Hyperhidrosis [Recovered/Resolved]
